FAERS Safety Report 5413331-3 (Version None)
Quarter: 2007Q3

REPORT INFORMATION
  Report Type: 
  Country: None (occurrence: None)
  Receive Date: 20070810
  Receipt Date: 20070807
  Transmission Date: 20080115
  Serious: Yes (Hospitalization)
  Sender: FDA-Public Use
  Company Number: 2007SP015953

PATIENT
  Age: 75 Year
  Sex: Male
  Weight: 73.63 kg

DRUGS (2)
  1. TEMOZOLOMIDE [Suspect]
     Indication: GLIOBLASTOMA MULTIFORME
     Dosage: 75 MG/M2; PO
     Route: 048
     Dates: start: 20070717, end: 20070802
  2. TEMOZOLOMIDE [Suspect]

REACTIONS (1)
  - ILEUS [None]
